APPROVED DRUG PRODUCT: SULFAMETHOXAZOLE AND TRIMETHOPRIM
Active Ingredient: SULFAMETHOXAZOLE; TRIMETHOPRIM
Strength: 400MG;80MG
Dosage Form/Route: TABLET;ORAL
Application: A070203 | Product #001
Applicant: USL PHARMA INC
Approved: Nov 8, 1985 | RLD: No | RS: No | Type: DISCN